FAERS Safety Report 7776599-4 (Version None)
Quarter: 2011Q3

REPORT INFORMATION
  Report Type: 
  Country: None (occurrence: None)
  Receive Date: 20110926
  Receipt Date: 20110915
  Transmission Date: 20111222
  Serious: Yes (Other)
  Sender: FDA-Public Use
  Company Number: US-JNJFOC-20110908345

PATIENT
  Sex: Male

DRUGS (2)
  1. RISPERIDONE [Suspect]
     Indication: AUTISM
     Route: 048
     Dates: end: 20090101
  2. RISPERDAL [Suspect]
     Indication: AUTISM
     Dosage: 2-8 MG
     Route: 048
     Dates: start: 20000101

REACTIONS (1)
  - DISTURBANCE IN SOCIAL BEHAVIOUR [None]
